FAERS Safety Report 4416699-X (Version None)
Quarter: 2004Q3

REPORT INFORMATION
  Report Type: 
  Country: None (occurrence: None)
  Receive Date: 20040802
  Receipt Date: 20040719
  Transmission Date: 20050211
  Serious: No
  Sender: FDA-Public Use
  Company Number: 207303

PATIENT
  Age: 63 Year
  Sex: Male
  Weight: 89.3 kg

DRUGS (4)
  1. AVASTIN [Suspect]
     Indication: COLORECTAL CANCER METASTATIC
     Dosage: 5 MG/KG, Q2W, INTRAVENOUS
     Route: 042
     Dates: start: 20040318
  2. FLUOROURACIL [Suspect]
     Indication: COLORECTAL CANCER METASTATIC
     Dosage: 1070 MG, Q2W
     Dates: start: 20040318
  3. LEUCOVORIN CALCIUM [Suspect]
     Indication: COLORECTAL CANCER METASTATIC
     Dosage: 43 MG, Q2W
     Dates: start: 20040318
  4. CAMPTOSAR [Suspect]
     Indication: COLORECTAL CANCER METASTATIC
     Dosage: 2108 MG, Q2W
     Dates: start: 20040318

REACTIONS (2)
  - ANAEMIA [None]
  - ASTHENIA [None]
